FAERS Safety Report 6106738-2 (Version None)
Quarter: 2009Q1

REPORT INFORMATION
  Report Type: 
  Country: None (occurrence: None)
  Receive Date: 20090304
  Receipt Date: 20090217
  Transmission Date: 20090719
  Serious: Yes (Other)
  Sender: FDA-Public Use
  Company Number: 2009163165

PATIENT
  Age: 31 Year
  Sex: Female
  Weight: 72.6 kg

DRUGS (5)
  1. FRAGMIN [Suspect]
     Indication: ANTIPHOSPHOLIPID SYNDROME
     Dosage: 0.2 ML, 1X/DAY, SUBCUTANEOUS
     Route: 058
     Dates: start: 20081222, end: 20090129
  2. ASAPHEN (ACETYLSALICYLIC ACID) [Concomitant]
  3. IRON (IRON) TABLET [Concomitant]
  4. VITAMIN B12 [Concomitant]
  5. MULTIVITAMINS (ASCORBIC ACID, ERGOCALCIFEROL, FOLIC ACID, NICOTINAMIDE [Concomitant]

REACTIONS (6)
  - ABORTION SPONTANEOUS [None]
  - APPLICATION SITE HAEMATOMA [None]
  - DRUG EXPOSURE DURING PREGNANCY [None]
  - INJECTION SITE HAEMORRHAGE [None]
  - INJECTION SITE INDURATION [None]
  - INJECTION SITE PAIN [None]
